FAERS Safety Report 6180399-9 (Version None)
Quarter: 2009Q2

REPORT INFORMATION
  Report Type: 
  Country: None (occurrence: None)
  Receive Date: 20090506
  Receipt Date: 20090429
  Transmission Date: 20091009
  Serious: Yes (Other)
  Sender: FDA-Public Use
  Company Number: IE-JNJFOC-20070202741

PATIENT
  Age: 21 Year
  Sex: Female

DRUGS (4)
  1. TYROZETS [Suspect]
     Indication: OROPHARYNGEAL PAIN
     Dosage: DOSE AND FREQUENCY UNKNOWN, ^FOR A FEW DAYS^
     Route: 048
  2. UNIFLU [Suspect]
     Indication: NASOPHARYNGITIS
     Route: 048
  3. LAMOTRIGINE [Concomitant]
     Indication: MYOCLONIC EPILEPSY
  4. ACETAZOLAMIDE [Concomitant]
     Indication: MYOCLONIC EPILEPSY

REACTIONS (1)
  - CONVULSION [None]
